FAERS Safety Report 12930021 (Version 3)
Quarter: 2016Q4

REPORT INFORMATION
  Report Type: Spontaneous
  Country: JP (occurrence: JP)
  Receive Date: 20161110
  Receipt Date: 20161205
  Transmission Date: 20170207
  Serious: Yes (Other)
  Sender: FDA-Public Use
  Company Number: JP-SEATTLE GENETICS-2016SGN01756

PATIENT

DRUGS (1)
  1. ADCETRIS [Suspect]
     Active Substance: BRENTUXIMAB VEDOTIN
     Indication: ANAPLASTIC LARGE-CELL LYMPHOMA
     Dosage: 50 MG, Q21D
     Route: 041
     Dates: start: 20160928

REACTIONS (4)
  - Neuropathy peripheral [Unknown]
  - Liver function test abnormal [Unknown]
  - Diarrhoea [Unknown]
  - Pancytopenia [Unknown]

NARRATIVE: CASE EVENT DATE: 201610
